FAERS Safety Report 5388521-9 (Version None)
Quarter: 2007Q3

REPORT INFORMATION
  Report Type: 
  Country: None (occurrence: None)
  Receive Date: 20070716
  Receipt Date: 20070501
  Transmission Date: 20080115
  Serious: Yes (Hospitalization)
  Sender: FDA-Public Use
  Company Number: US-BRISTOL-MYERS SQUIBB COMPANY-13766571

PATIENT
  Age: 58 Year
  Sex: Male

DRUGS (10)
  1. SINEMET [Suspect]
     Indication: PARKINSON'S DISEASE
     Dosage: 25/100 TABLET STRENGTH; TOTAL OF 6.5 TABLETS A DAY
     Route: 048
  2. SINEMET CR [Interacting]
     Indication: PARKINSON'S DISEASE
     Dosage: 25/100 DOSAGE STRENGTH; 2 TABLETS DAILY
     Route: 048
  3. WARFARIN SODIUM [Interacting]
     Indication: THROMBOSIS
     Route: 048
     Dates: start: 20070330, end: 20070403
  4. JANTOVEN [Interacting]
     Indication: THROMBOSIS
     Dosage: 5MG ON 04-APR-2007, 05-APR-2007, 07-APR-2007; 2.5MG ON 06-APR-2007, 08-APR-2007; UNK ON 09-APR-2007
     Route: 048
     Dates: start: 20070404, end: 20070409
  5. COMTAN [Interacting]
     Indication: PARKINSON'S DISEASE
     Route: 048
  6. TRIHEXYPHENIDYL HCL [Interacting]
     Indication: PARKINSON'S DISEASE
     Route: 048
  7. AMBIEN [Concomitant]
  8. REQUIP [Concomitant]
  9. CALCIUM CHLORIDE [Concomitant]
  10. MULTI-VITAMIN [Concomitant]

REACTIONS (6)
  - ASTHENIA [None]
  - BACK PAIN [None]
  - DRUG INTERACTION [None]
  - INSOMNIA [None]
  - PARKINSON'S DISEASE [None]
  - RESTLESSNESS [None]
